FAERS Safety Report 13144336 (Version 2)
Quarter: 2017Q1

REPORT INFORMATION
  Report Type: Spontaneous
  Country: US (occurrence: US)
  Receive Date: 20170124
  Receipt Date: 20170308
  Transmission Date: 20170428
  Serious: No
  Sender: FDA-Public Use
  Company Number: US-ASTRAZENECA-2016SF13732

PATIENT
  Age: 63 Year
  Sex: Female

DRUGS (5)
  1. NEXIUM 24HR [Suspect]
     Active Substance: ESOMEPRAZOLE MAGNESIUM
     Indication: GASTROOESOPHAGEAL REFLUX DISEASE
     Route: 048
     Dates: start: 201610
  2. NEXIUM 24HR [Suspect]
     Active Substance: ESOMEPRAZOLE MAGNESIUM
     Indication: DYSPEPSIA
     Route: 048
     Dates: start: 201610
  3. NEXIUM 24HR [Suspect]
     Active Substance: ESOMEPRAZOLE MAGNESIUM
     Indication: GASTROOESOPHAGEAL REFLUX DISEASE
     Route: 048
  4. PROBIOTIC [Concomitant]
     Active Substance: PROBIOTICS NOS
  5. NEXIUM 24HR [Suspect]
     Active Substance: ESOMEPRAZOLE MAGNESIUM
     Indication: DYSPEPSIA
     Route: 048

REACTIONS (5)
  - Pollakiuria [Recovered/Resolved]
  - Product use issue [Unknown]
  - Drug effect incomplete [Recovered/Resolved]
  - Intentional product misuse [Unknown]
  - Frequent bowel movements [Unknown]

NARRATIVE: CASE EVENT DATE: 201610
